FAERS Safety Report 4308907-0 (Version None)
Quarter: 2004Q1

REPORT INFORMATION
  Report Type: 
  Country: None (occurrence: None)
  Receive Date: 20040227
  Receipt Date: 20040217
  Transmission Date: 20041129
  Serious: Yes (Hospitalization, Disabling)
  Sender: FDA-Public Use
  Company Number: NSADSS2002018639

PATIENT
  Age: 38 Year
  Sex: Male

DRUGS (4)
  1. REMICADE [Suspect]
     Indication: CROHN'S DISEASE
     Dosage: 300 MG, 1 IN 1 AS NECESSARY INTRAVENOUS DRIP
     Route: 041
     Dates: start: 20010112, end: 20010112
  2. REMICADE [Suspect]
     Indication: CROHN'S DISEASE
     Dosage: 300 MG, 1 IN 1 AS NECESSARY INTRAVENOUS DRIP
     Route: 041
     Dates: start: 20010309, end: 20010309
  3. PREDNISOLONE [Concomitant]
  4. AZATHIOPRINE [Concomitant]

REACTIONS (3)
  - PNEUMONIA PRIMARY ATYPICAL [None]
  - SACROILIITIS [None]
  - TUBERCULOSIS [None]
